FAERS Safety Report 19575153 (Version 1)
Quarter: 2021Q3

REPORT INFORMATION
  Report Type: Report from Study
  Country: US (occurrence: US)
  Receive Date: 20210719
  Receipt Date: 20210719
  Transmission Date: 20211014
  Serious: Yes (Hospitalization)
  Sender: FDA-Public Use
  Company Number: US-VANDA PHARMACEUTICALS, INC-2021TASUS004711

PATIENT
  Sex: Male

DRUGS (2)
  1. HETLIOZ [Suspect]
     Active Substance: TASIMELTEON
     Dosage: 20 MILLIGRAM, QHS
     Route: 048
     Dates: end: 202101
  2. HETLIOZ [Suspect]
     Active Substance: TASIMELTEON
     Indication: NON-24-HOUR SLEEP-WAKE DISORDER
     Dosage: 20 MILLIGRAM, QHS
     Route: 048
     Dates: end: 202101

REACTIONS (4)
  - Urinary tract infection [Unknown]
  - Kidney infection [Unknown]
  - Abdominal discomfort [Unknown]
  - Therapeutic product effect decreased [Unknown]
